FAERS Safety Report 11521526 (Version 1)
Quarter: 2015Q3

REPORT INFORMATION
  Report Type: Spontaneous
  Country: US (occurrence: US)
  Receive Date: 20150918
  Receipt Date: 20150918
  Transmission Date: 20151125
  Serious: Yes (Other)
  Sender: FDA-Public Use
  Company Number: US-TAKEDA-TPA2011A05360

PATIENT

DRUGS (6)
  1. DIABETA [Concomitant]
     Active Substance: GLYBURIDE
  2. AMARYL [Concomitant]
     Active Substance: GLIMEPIRIDE
  3. LANTUS [Concomitant]
     Active Substance: INSULIN GLARGINE
  4. MICRONASE [Concomitant]
     Active Substance: GLYBURIDE
  5. ACTOS [Suspect]
     Active Substance: PIOGLITAZONE HYDROCHLORIDE
     Indication: TYPE 2 DIABETES MELLITUS
     Dates: start: 200301, end: 200609
  6. GLUCOPHAGE [Concomitant]
     Active Substance: METFORMIN HYDROCHLORIDE

REACTIONS (1)
  - Bladder cancer [Unknown]

NARRATIVE: CASE EVENT DATE: 200708
